FAERS Safety Report 25671982 (Version 2)
Quarter: 2025Q3

REPORT INFORMATION
  Report Type: Report from Study
  Country: CA (occurrence: CA)
  Receive Date: 20250812
  Receipt Date: 20250815
  Transmission Date: 20251021
  Serious: Yes (Other)
  Sender: ABBVIE
  Company Number: CA-ABBVIE-6408635

PATIENT
  Sex: Female

DRUGS (1)
  1. SKYRIZI [Suspect]
     Active Substance: RISANKIZUMAB-RZAA
     Indication: Crohn^s disease
     Route: 058

REACTIONS (6)
  - Portal vein thrombosis [Unknown]
  - Drug ineffective [Unknown]
  - Pain in extremity [Unknown]
  - Proctitis [Unknown]
  - Large intestinal stenosis [Unknown]
  - Vasculitis [Unknown]
